FAERS Safety Report 16341372 (Version 1)
Quarter: 2019Q2

REPORT INFORMATION
  Report Type: Spontaneous
  Country: US (occurrence: US)
  Receive Date: 20190522
  Receipt Date: 20190522
  Transmission Date: 20190711
  Serious: No
  Sender: FDA-Public Use
  Company Number: US-ROCHE-2263304

PATIENT
  Age: 14 Year
  Sex: Female
  Weight: 57.2 kg

DRUGS (1)
  1. XOFLUZA [Suspect]
     Active Substance: BALOXAVIR MARBOXIL
     Indication: INFLUENZA
     Dosage: ONE TIME DOSE
     Route: 065

REACTIONS (2)
  - Incorrect dose administered [Unknown]
  - Drug hypersensitivity [Unknown]
